FAERS Safety Report 4467287-0 (Version None)
Quarter: 2004Q4

REPORT INFORMATION
  Report Type: 
  Country: None (occurrence: None)
  Receive Date: 20041006
  Receipt Date: 20041004
  Transmission Date: 20050328
  Serious: Yes (Hospitalization)
  Sender: FDA-Public Use
  Company Number: US-GLAXOSMITHKLINE-A0528417A

PATIENT
  Age: 75 Year
  Sex: Male

DRUGS (3)
  1. NAVELBINE [Suspect]
     Indication: NON-SMALL CELL LUNG CANCER
     Route: 042
     Dates: start: 20040930, end: 20040930
  2. INSULIN (SLIDING SCALE) [Concomitant]
  3. HEPARIN [Concomitant]

REACTIONS (1)
  - HYPOGLYCAEMIA [None]
